FAERS Safety Report 19190442 (Version 1)
Quarter: 2021Q2

REPORT INFORMATION
  Report Type: Spontaneous
  Country: CN (occurrence: CN)
  Receive Date: 20210428
  Receipt Date: 20210428
  Transmission Date: 20210717
  Serious: Yes (Other)
  Sender: FDA-Public Use
  Company Number: CN-LUPIN PHARMACEUTICALS INC.-2021-05464

PATIENT
  Age: 61 Year
  Sex: Male

DRUGS (15)
  1. RIBAVIRIN. [Suspect]
     Active Substance: RIBAVIRIN
     Indication: COVID-19 PNEUMONIA
     Dosage: UNK
     Route: 065
     Dates: start: 202002
  2. GANCICLOVIR. [Concomitant]
     Active Substance: GANCICLOVIR
     Indication: ANTIVIRAL TREATMENT
     Dosage: 300 MILLIGRAM, BID
     Route: 042
     Dates: start: 202001, end: 20200129
  3. LEVOFLOXACIN. [Suspect]
     Active Substance: LEVOFLOXACIN
     Indication: COVID-19 PNEUMONIA
     Dosage: UNK
     Route: 065
  4. LINEZOLID. [Suspect]
     Active Substance: LINEZOLID
     Indication: COVID-19 PNEUMONIA
     Dosage: UNK
     Route: 065
     Dates: start: 202002
  5. IMMUNOGLOBULINS NOS [Suspect]
     Active Substance: IMMUNE GLOBULIN NOS
     Indication: COVID-19 PNEUMONIA
     Dosage: UNK
     Route: 042
     Dates: start: 202001
  6. BORTEZOMIB. [Concomitant]
     Active Substance: BORTEZOMIB
     Indication: PLASMA CELL MYELOMA
     Dosage: 1.3 MILLIGRAM/SQ. METER?PLANNED FOR DAYS 2, 5, 9 AND 12
     Route: 065
     Dates: start: 20200116
  7. DEXAMETHASONE. [Concomitant]
     Active Substance: DEXAMETHASONE
     Indication: PLASMA CELL MYELOMA
     Dosage: 40 MILLIGRAM?PLANNED FOR DAYS 2, 5, 9 AND 12
     Route: 042
     Dates: start: 20200116
  8. MOXIFLOXACIN HYDROCHLORIDE. [Suspect]
     Active Substance: MOXIFLOXACIN HYDROCHLORIDE
     Indication: COVID-19 PNEUMONIA
     Dosage: 0.4 GRAM, QD
     Route: 065
  9. INTERFERON ALFA NOS [Suspect]
     Active Substance: INTERFERON ALFA-2A OR INTERFERON ALFA-2B
     Indication: COVID-19 PNEUMONIA
     Dosage: UNK UNK, BID (5 MU PER TIME, TWICE DAILY)
     Dates: start: 202001
  10. TEICOPLANIN [Concomitant]
     Active Substance: TEICOPLANIN
     Indication: ANTIBIOTIC THERAPY
     Dosage: 400 MILLIGRAM, QD
     Route: 042
     Dates: start: 202001
  11. VORICONAZOLE. [Concomitant]
     Active Substance: VORICONAZOLE
     Indication: ANTIFUNGAL TREATMENT
     Dosage: 0.2 GRAM, BID
     Route: 042
     Dates: start: 202001, end: 20200129
  12. MEROPENEM. [Concomitant]
     Active Substance: MEROPENEM
     Indication: ANTIBIOTIC THERAPY
     Dosage: 0.1 GRAM, TID
     Route: 042
     Dates: start: 202001
  13. CEFTAZIDIME. [Suspect]
     Active Substance: CEFTAZIDIME
     Indication: COVID-19 PNEUMONIA
     Dosage: 2.4 GRAM, BID (INFUSION)
     Route: 042
     Dates: start: 202002
  14. OSELTAMIVIR [Suspect]
     Active Substance: OSELTAMIVIR
     Indication: COVID-19 PNEUMONIA
     Dosage: 75 MILLIGRAM, BID
     Route: 048
     Dates: start: 20200201
  15. ARBIDOL [Suspect]
     Active Substance: UMIFENOVIR
     Indication: COVID-19 PNEUMONIA
     Dosage: 0.2 GRAM, TID
     Route: 048
     Dates: start: 20200201

REACTIONS (1)
  - Off label use [Unknown]

NARRATIVE: CASE EVENT DATE: 2020
